FAERS Safety Report 12496631 (Version 2)
Quarter: 2016Q3

REPORT INFORMATION
  Report Type: Spontaneous
  Country: PL (occurrence: PL)
  Receive Date: 20160624
  Receipt Date: 20160927
  Transmission Date: 20161109
  Serious: Yes (Other)
  Sender: FDA-Public Use
  Company Number: PL-TEVA-669387ISR

PATIENT
  Age: 36 Year
  Sex: Female

DRUGS (4)
  1. OXALIPLATIN. [Suspect]
     Active Substance: OXALIPLATIN
     Indication: METASTASES TO LIVER
     Dosage: ON DAY 1, 85MG/M2
     Route: 041
     Dates: end: 201403
  2. FLUOROURACIL. [Suspect]
     Active Substance: FLUOROURACIL
     Indication: METASTASES TO LIVER
     Dosage: ON DAY 1, 400 MG/M2 GIVEN OVER 2-4 MINUTES
     Route: 040
     Dates: end: 201403
  3. FLUOROURACIL. [Suspect]
     Active Substance: FLUOROURACIL
     Indication: METASTASES TO LIVER
     Dosage: ON DAY 1, 600 MG/M2 AS A 22-HOUR CONTINUOUS INFUSION
     Route: 041
     Dates: end: 201403
  4. FOLINIC ACID [Suspect]
     Active Substance: LEUCOVORIN
     Indication: METASTASES TO LIVER
     Dosage: ON DAY 1, 200 MG/M2 GIVEN OVER 120 MINUTES
     Route: 041
     Dates: end: 201403

REACTIONS (3)
  - Formication [Unknown]
  - Musculoskeletal pain [Unknown]
  - Chills [Unknown]
